FAERS Safety Report 6760884-9 (Version None)
Quarter: 2010Q2

REPORT INFORMATION
  Report Type: 
  Country: None (occurrence: None)
  Receive Date: 20100608
  Receipt Date: 20100602
  Transmission Date: 20101027
  Serious: Yes (Death, Hospitalization, Other)
  Sender: FDA-Public Use
  Company Number: PHHY2009JP58704

PATIENT
  Sex: Female

DRUGS (12)
  1. TASIGNA [Suspect]
     Indication: CHRONIC MYELOID LEUKAEMIA
     Dosage: 200 MG DAILY
     Route: 048
     Dates: start: 20091130, end: 20091204
  2. GLEEVEC [Suspect]
     Indication: CHRONIC MYELOID LEUKAEMIA
     Dosage: UNK
     Route: 048
     Dates: start: 20010101
  3. GLEEVEC [Suspect]
     Dosage: 400 MG/DAY
     Route: 048
     Dates: start: 20040722, end: 20040814
  4. GLEEVEC [Suspect]
     Dosage: 200 MG/DAY
     Route: 048
     Dates: start: 20080424, end: 20091013
  5. HYDREA [Suspect]
     Indication: CHRONIC MYELOID LEUKAEMIA
     Dosage: 1000 MG DAILY
     Route: 048
     Dates: start: 20091112, end: 20091213
  6. FAMOTIDINE [Concomitant]
     Indication: PROPHYLAXIS
     Dosage: 10 MG, UNK
     Route: 048
     Dates: start: 20091013, end: 20091213
  7. PREDONINE [Concomitant]
     Indication: PROPHYLAXIS
     Dosage: 2.5 MG, UNK
     Route: 048
     Dates: start: 20091013, end: 20091213
  8. DIART [Concomitant]
     Dosage: 60 MG, UNK
     Route: 048
     Dates: start: 20091013, end: 20091213
  9. ZYLORIC [Concomitant]
     Dosage: 300 MG, UNK
     Route: 048
     Dates: start: 20091013, end: 20091213
  10. HIBON [Concomitant]
     Dosage: 20 MG, UNK
     Route: 048
     Dates: start: 20091013, end: 20091213
  11. ALESION [Concomitant]
     Dosage: 20 MG, UNK
     Route: 048
     Dates: start: 20091013, end: 20091213
  12. AMLODIN OD [Concomitant]
     Dosage: 5 MG, UNK
     Route: 048
     Dates: start: 20091013, end: 20091213

REACTIONS (11)
  - ANAEMIA [None]
  - ASCITES [None]
  - CONDITION AGGRAVATED [None]
  - DERMATITIS EXFOLIATIVE [None]
  - GENERALISED OEDEMA [None]
  - PERICARDIAL EFFUSION [None]
  - PLATELET COUNT DECREASED [None]
  - PLEURAL EFFUSION [None]
  - REFUSAL OF TREATMENT BY PATIENT [None]
  - RENAL IMPAIRMENT [None]
  - WHITE BLOOD CELL COUNT DECREASED [None]
